FAERS Safety Report 11320937 (Version 1)
Quarter: 2015Q2

REPORT INFORMATION
  Report Type: Spontaneous
  Country: US (occurrence: None)
  Receive Date: 20150626
  Receipt Date: 20150626
  Transmission Date: 20150822
  Serious: No
  Sender: FDA-Public Use
  Company Number: 1000076795

PATIENT
  Sex: Male

DRUGS (1)
  1. LINZESS [Suspect]
     Active Substance: LINACLOTIDE
     Indication: CONSTIPATION
     Dates: start: 201504, end: 201504

REACTIONS (4)
  - Drug ineffective [None]
  - Nausea [None]
  - Constipation [None]
  - Dyspepsia [None]

NARRATIVE: CASE EVENT DATE: 201504
